FAERS Safety Report 11641533 (Version 2)
Quarter: 2015Q4

REPORT INFORMATION
  Report Type: Spontaneous
  Country: US (occurrence: US)
  Receive Date: 20151019
  Receipt Date: 20151110
  Transmission Date: 20160304
  Serious: Yes (Hospitalization)
  Sender: FDA-Public Use
  Company Number: US-IGSA-GTI003583

PATIENT
  Age: 48 Year
  Sex: Female
  Weight: 98 kg

DRUGS (2)
  1. PROLASTIN-C [Suspect]
     Active Substance: .ALPHA.1-PROTEINASE INHIBITOR HUMAN
     Indication: ALPHA-1 ANTI-TRYPSIN INCREASED
     Route: 042
     Dates: start: 20151001, end: 20151001
  2. PROLASTIN-C [Suspect]
     Active Substance: .ALPHA.1-PROTEINASE INHIBITOR HUMAN
     Indication: ALPHA-1 ANTI-TRYPSIN INCREASED
     Route: 042
     Dates: start: 2010

REACTIONS (4)
  - Chills [Recovered/Resolved]
  - Oxygen saturation decreased [Recovered/Resolved]
  - Incorrect product storage [None]
  - Pneumonia [Recovered/Resolved]

NARRATIVE: CASE EVENT DATE: 20151001
